FAERS Safety Report 4506169-2 (Version None)
Quarter: 2004Q4

REPORT INFORMATION
  Report Type: 
  Country: None (occurrence: None)
  Receive Date: 20041025
  Receipt Date: 20031107
  Transmission Date: 20050328
  Serious: Yes (Other)
  Sender: FDA-Public Use
  Company Number: US-JNJFOC-20030705180

PATIENT
  Age: 20 Year
  Sex: Male
  Weight: 79.3795 kg

DRUGS (5)
  1. REMICADE [Suspect]
     Indication: CROHN'S DISEASE
     Dosage: SEE IMAGE
     Route: 042
     Dates: start: 20020101
  2. REMICADE [Suspect]
     Indication: CROHN'S DISEASE
     Dosage: SEE IMAGE
     Route: 042
     Dates: start: 20030703
  3. MERCAPTOPURINE [Concomitant]
     Indication: COLITIS
     Dosage: 75 MG, 1 IN 1 DAY
     Dates: start: 20011201, end: 20021011
  4. METHOTREXATE SODIUM [Suspect]
     Indication: COLITIS
     Dosage: 15 MG, 1 IN 1 WEEK
     Dates: start: 20030201, end: 20030301
  5. ASACOL [Concomitant]

REACTIONS (3)
  - CONDITION AGGRAVATED [None]
  - CROHN'S DISEASE [None]
  - LEUKOPENIA [None]
